FAERS Safety Report 4823360-6 (Version None)
Quarter: 2005Q4

REPORT INFORMATION
  Report Type: 
  Country: None (occurrence: None)
  Receive Date: 20051107
  Receipt Date: 20051101
  Transmission Date: 20060501
  Serious: Yes (Hospitalization)
  Sender: FDA-Public Use
  Company Number: STA-AE-05-MTX-026

PATIENT
  Age: 64 Year
  Sex: Female

DRUGS (11)
  1. METHOTREXATE [Suspect]
     Indication: RHEUMATOID ARTHRITIS
     Dosage: 20 MG 1XW - ORAL
     Route: 048
     Dates: start: 19980212
  2. PLACEBO [Suspect]
     Indication: RHEUMATOID ARTHRITIS
     Dosage: IV
     Route: 042
     Dates: start: 20050520
  3. ABATACEPT [Suspect]
     Indication: RHEUMATOID ARTHRITIS
     Dosage: 750 MG - IV
     Route: 042
     Dates: start: 20050520
  4. INFLIXIMAB [Suspect]
     Indication: RHEUMATOID ARTHRITIS
     Dosage: 216 MG - IV
     Route: 042
     Dates: start: 20050520
  5. PREDNISONE [Concomitant]
  6. CALTRATE (CALCIUM CARBONATE) [Concomitant]
  7. OSTELIN (ERGOCALCIFEROL) [Concomitant]
  8. ACTONEL [Concomitant]
  9. FGF (FERROUS SULFATE + FOLIC ACID) [Concomitant]
  10. ESTALIS (ESTRADIOL + NORETHISTERONE ACETATE) [Concomitant]
  11. ISONIAZID [Concomitant]

REACTIONS (3)
  - CAMPYLOBACTER INTESTINAL INFECTION [None]
  - DIARRHOEA [None]
  - WHITE BLOOD CELLS STOOL POSITIVE [None]
